FAERS Safety Report 14394501 (Version 1)
Quarter: 2018Q1

REPORT INFORMATION
  Report Type: Spontaneous
  Country: US (occurrence: US)
  Receive Date: 20180116
  Receipt Date: 20180116
  Transmission Date: 20180509
  Serious: Yes (Hospitalization)
  Sender: FDA-Public Use
  Company Number: US-SA-2018SA009116

PATIENT
  Age: 63 Year
  Sex: Female

DRUGS (2)
  1. LANTUS SOLOSTAR [Suspect]
     Active Substance: INSULIN GLARGINE
     Indication: TYPE 2 DIABETES MELLITUS
     Dosage: DOSE:50 UNIT(S)
     Route: 051
     Dates: start: 201712, end: 20180107
  2. SOLOSTAR [Suspect]
     Active Substance: DEVICE
     Indication: TYPE 2 DIABETES MELLITUS
     Dates: start: 201712, end: 20180107

REACTIONS (6)
  - Cough [Unknown]
  - Product use issue [Unknown]
  - Lower limb fracture [Unknown]
  - Drug dose omission [Unknown]
  - Product storage error [Unknown]
  - Fall [Unknown]

NARRATIVE: CASE EVENT DATE: 201712
